FAERS Safety Report 25327166 (Version 1)
Quarter: 2025Q2

REPORT INFORMATION
  Report Type: Spontaneous
  Country: EG (occurrence: EG)
  Receive Date: 20250517
  Receipt Date: 20250517
  Transmission Date: 20250717
  Serious: Yes (Other)
  Sender: AMGEN
  Company Number: EG-AMGEN-EGYSP2025091961

PATIENT
  Age: 46 Year
  Sex: Female
  Weight: 78 kg

DRUGS (7)
  1. MVASI [Suspect]
     Active Substance: BEVACIZUMAB-AWWB
     Indication: Colon cancer
     Dosage: 400 MILLIGRAM, Q2WK (PER 14 DAY)
     Route: 040
     Dates: start: 202502, end: 2025
  2. MVASI [Suspect]
     Active Substance: BEVACIZUMAB-AWWB
     Dosage: 400 MILLIGRAM, Q2WK (PER 14 DAY)
     Route: 040
     Dates: start: 2025
  3. FLUOROURACIL\IRINOTECAN\LEUCOVORIN [Concomitant]
     Active Substance: FLUOROURACIL\IRINOTECAN\LEUCOVORIN
     Indication: Colon cancer
     Dosage: 306 MILLIGRAM, Q2WK (PER 14 DAYS)
     Route: 040
  4. LEUCOVORIN CALCIUM [Concomitant]
     Active Substance: LEUCOVORIN CALCIUM
     Indication: Colon cancer
     Route: 040
  5. FLUOROURACIL [Concomitant]
     Active Substance: FLUOROURACIL
     Indication: Colon cancer
     Route: 040
  6. DEXAMETHASONE [Concomitant]
     Active Substance: DEXAMETHASONE
  7. Emex [Concomitant]

REACTIONS (1)
  - Anaemia [Recovering/Resolving]

NARRATIVE: CASE EVENT DATE: 20250323
